FAERS Safety Report 8815430 (Version 2)
Quarter: 2013Q2

REPORT INFORMATION
  Report Type: Spontaneous
  Country: US (occurrence: US)
  Receive Date: 20120928
  Receipt Date: 20130516
  Transmission Date: 20140414
  Serious: Yes (Other)
  Sender: FDA-Public Use
  Company Number: US-ASTRAZENECA-2012SE73340

PATIENT
  Age: 59 Year
  Sex: Female
  Weight: 86.6 kg

DRUGS (25)
  1. ATENOLOL [Suspect]
     Route: 048
     Dates: start: 20120430
  2. PRILOSEC [Suspect]
     Route: 048
  3. SEROQUEL [Suspect]
     Dosage: 50 MG TABLET IN THE MORNING TWO TABLETS IN THE EVENING
     Route: 048
     Dates: start: 20111208
  4. SEROQUEL [Suspect]
     Route: 048
     Dates: start: 20120918
  5. ASTEPRO [Concomitant]
     Dosage: 137 MCG TWO SPRAYS TWO TIMES A DAY
     Route: 055
     Dates: start: 20100311
  6. MYCOLOG II [Concomitant]
     Indication: RASH
     Dosage: 10000-0.1 UNIT/GM %
     Route: 061
     Dates: start: 20101223
  7. PHENERGAN [Concomitant]
     Indication: NAUSEA
     Route: 048
     Dates: start: 20110620
  8. CALTRATE WITH VITAMIN D [Concomitant]
     Dosage: 600/400 ONE PILL TWO TIMES A DAY
     Dates: start: 20110815
  9. TEGRETOL [Concomitant]
     Dates: start: 20111208
  10. MACROBID [Concomitant]
     Route: 048
     Dates: start: 20111221
  11. TRAZODONE PSYCH [Concomitant]
     Route: 048
     Dates: start: 20110812
  12. WELLBUTRIN SR [Concomitant]
     Route: 048
  13. FLONASE [Concomitant]
     Dosage: 50 MCG TWO SPRAYS DAILY
     Route: 055
     Dates: start: 20100311
  14. FOSAMAX [Concomitant]
     Route: 048
     Dates: start: 20100311
  15. SKELAXIN [Concomitant]
     Route: 048
     Dates: start: 20120105
  16. PERCOCET [Concomitant]
     Dosage: 10-325 MG FOUR TIMES DAILY
     Route: 048
     Dates: start: 20120311, end: 20120430
  17. DURAGESIC [Concomitant]
     Dosage: 25 MCG/HR EVERY THREE DAYS
     Route: 062
     Dates: start: 20120105, end: 20120529
  18. CIPROFLOXACIN HCL [Concomitant]
     Route: 048
     Dates: start: 20120629
  19. FLAGYL [Concomitant]
     Route: 048
     Dates: start: 20120629
  20. OXYCODONE HCL [Concomitant]
     Route: 048
     Dates: start: 20120529
  21. TRAZODONE HCL [Concomitant]
     Route: 048
     Dates: start: 20120629
  22. SOMA [Concomitant]
     Dates: start: 20101103
  23. SOMA [Concomitant]
     Route: 048
  24. CLONAZEPAM [Concomitant]
     Route: 048
     Dates: start: 20120918
  25. RANITIDINE HCL [Concomitant]
     Route: 048
     Dates: start: 20121109

REACTIONS (24)
  - Lumbar vertebral fracture [Unknown]
  - Gastrooesophageal reflux disease [Unknown]
  - Body tinea [Unknown]
  - Senile osteoporosis [Unknown]
  - Tachycardia [Unknown]
  - Rhinitis allergic [Unknown]
  - Cerumen impaction [Unknown]
  - Actinic keratosis [Unknown]
  - Osteoporosis [Unknown]
  - Cystitis [Unknown]
  - Skin candida [Unknown]
  - Pain [Unknown]
  - Depression [Unknown]
  - Muscle spasms [Unknown]
  - Palpitations [Unknown]
  - Abdominal pain [Unknown]
  - Back pain [Unknown]
  - Intervertebral disc degeneration [Unknown]
  - Malaise [Unknown]
  - Fatigue [Unknown]
  - Anxiety [Unknown]
  - Insomnia [Unknown]
  - Fall [Unknown]
  - Joint injury [Unknown]
